FAERS Safety Report 10568917 (Version 2)
Quarter: 2014Q4

REPORT INFORMATION
  Report Type: Spontaneous
  Country: JP (occurrence: JP)
  Receive Date: 20141106
  Receipt Date: 20141211
  Transmission Date: 20150529
  Serious: Yes (Death)
  Sender: FDA-Public Use
  Company Number: JP-TEVA-520446ISR

PATIENT
  Age: 39 Year
  Sex: Female
  Weight: 46 kg

DRUGS (2)
  1. CARBOPLATIN. [Suspect]
     Active Substance: CARBOPLATIN
     Indication: LYMPHANGIOSIS CARCINOMATOSA
  2. PACLITAXEL. [Suspect]
     Active Substance: PACLITAXEL
     Indication: LYMPHANGIOSIS CARCINOMATOSA

REACTIONS (1)
  - Disseminated intravascular coagulation [Fatal]
